FAERS Safety Report 6788859-4 (Version None)
Quarter: 2010Q2

REPORT INFORMATION
  Report Type: 
  Country: None (occurrence: None)
  Receive Date: 20100623
  Receipt Date: 20080604
  Transmission Date: 20101027
  Serious: Yes (Other)
  Sender: FDA-Public Use
  Company Number: US-PFIZER INC-2008034215

PATIENT
  Sex: Male
  Weight: 137.9 kg

DRUGS (1)
  1. SUTENT [Suspect]
     Indication: METASTATIC RENAL CELL CARCINOMA
     Dates: start: 20071112, end: 20080423

REACTIONS (9)
  - CONTUSION [None]
  - ECCHYMOSIS [None]
  - HAEMATURIA [None]
  - OEDEMA PERIPHERAL [None]
  - OROPHARYNGEAL CANDIDIASIS [None]
  - PERFORMANCE STATUS DECREASED [None]
  - PLATELET COUNT DECREASED [None]
  - PYREXIA [None]
  - URINARY INCONTINENCE [None]
